FAERS Safety Report 4286023-4 (Version None)
Quarter: 2004Q1

REPORT INFORMATION
  Report Type: 
  Country: None (occurrence: None)
  Receive Date: 20040202
  Receipt Date: 20040127
  Transmission Date: 20041129
  Serious: Yes (Death)
  Sender: FDA-Public Use
  Company Number: 200310386BYL

PATIENT
  Age: 59 Year
  Sex: Male
  Weight: 54 kg

DRUGS (11)
  1. CIPROFLOXACIN HCL [Suspect]
     Indication: PNEUMONIA
     Dosage: 600 MG, TOTAL DAILY, INTRAVENOUS DRIP
     Route: 041
     Dates: start: 20030305, end: 20030313
  2. AQUPLA (NEDAPLATIN) [Suspect]
     Indication: LUNG NEOPLASM MALIGNANT
     Dates: start: 20030107, end: 20030205
  3. NAVELBINE [Suspect]
     Indication: LUNG NEOPLASM MALIGNANT
     Dates: start: 20030107, end: 20030205
  4. MUCODYNE [Concomitant]
  5. DIPYRIDAMOLE [Concomitant]
  6. BASEN [Concomitant]
  7. LOXONIN [Concomitant]
  8. MARZULENE S [Concomitant]
  9. NOVOLET 10 R [Concomitant]
  10. CARBENIN [Concomitant]
  11. KEITEN [Concomitant]

REACTIONS (6)
  - BLOOD LACTATE DEHYDROGENASE INCREASED [None]
  - C-REACTIVE PROTEIN INCREASED [None]
  - CONDITION AGGRAVATED [None]
  - INTERSTITIAL LUNG DISEASE [None]
  - PULMONARY FIBROSIS [None]
  - RESPIRATORY FAILURE [None]
